FAERS Safety Report 8922103 (Version 3)
Quarter: 2013Q2

REPORT INFORMATION
  Report Type: Report from Study
  Country: CA (occurrence: CA)
  Receive Date: 20121123
  Receipt Date: 20130522
  Transmission Date: 20140414
  Serious: No
  Sender: FDA-Public Use
  Company Number: PHHY2012CA106474

PATIENT
  Age: 38 Year
  Sex: Female

DRUGS (1)
  1. GILENYA [Suspect]
     Indication: RELAPSING-REMITTING MULTIPLE SCLEROSIS
     Dosage: 0.5 MG, QD
     Route: 048
     Dates: start: 20120103

REACTIONS (15)
  - Hypoaesthesia [Unknown]
  - Oropharyngeal pain [Unknown]
  - Nasal congestion [Unknown]
  - Swelling [Unknown]
  - Weight increased [Recovering/Resolving]
  - Local swelling [Recovering/Resolving]
  - Pain in extremity [Not Recovered/Not Resolved]
  - Fatigue [Unknown]
  - Gait disturbance [Unknown]
  - Burning sensation [Unknown]
  - Abdominal discomfort [Unknown]
  - Visual impairment [Recovering/Resolving]
  - Eye pain [Unknown]
  - Paraesthesia [Unknown]
  - Dizziness [Unknown]
